FAERS Safety Report 14228098 (Version 4)
Quarter: 2017Q4

REPORT INFORMATION
  Report Type: Report from Study
  Country: US (occurrence: US)
  Receive Date: 20171127
  Receipt Date: 20171215
  Transmission Date: 20180321
  Serious: Yes (Other)
  Sender: FDA-Public Use
  Company Number: US-JAZZ-2017-US-015585

PATIENT
  Age: 32 Year
  Sex: Female
  Weight: 47.61 kg

DRUGS (4)
  1. PENICILLIN                         /00000901/ [Suspect]
     Active Substance: PENICILLIN G
     Indication: SINUSITIS
  2. XYREM [Suspect]
     Active Substance: SODIUM OXYBATE
     Indication: NARCOLEPSY
     Dosage: 2.25 G, BID
     Route: 048
     Dates: start: 20171116
  3. XYREM [Suspect]
     Active Substance: SODIUM OXYBATE
     Indication: CATAPLEXY
  4. PENICILLIN                         /00000901/ [Suspect]
     Active Substance: PENICILLIN G
     Indication: EYE INFECTION

REACTIONS (7)
  - Night sweats [Not Recovered/Not Resolved]
  - Eye infection [Recovered/Resolved]
  - Weight decreased [Recovering/Resolving]
  - Decreased appetite [Recovering/Resolving]
  - Sinusitis [Recovered/Resolved]
  - Feeling abnormal [Unknown]
  - Ocular hyperaemia [Recovered/Resolved]

NARRATIVE: CASE EVENT DATE: 201711
